FAERS Safety Report 19441225 (Version 1)
Quarter: 2021Q2

REPORT INFORMATION
  Report Type: Spontaneous
  Country: US (occurrence: US)
  Receive Date: 20210617
  Receipt Date: 20210617
  Transmission Date: 20210717
  Serious: No
  Sender: FDA-Public Use
  Company Number: None

PATIENT
  Age: 61 Year
  Sex: Female
  Weight: 85.5 kg

DRUGS (16)
  1. CAPLYTA [Suspect]
     Active Substance: LUMATEPERONE
     Indication: BIPOLAR II DISORDER
     Route: 048
     Dates: start: 20210616, end: 20210616
  2. BUPROPRION [Concomitant]
     Active Substance: BUPROPION
  3. LAMOTRAGINE [Concomitant]
     Active Substance: LAMOTRIGINE
  4. MILK THISTLE [Concomitant]
     Active Substance: DIETARY SUPPLEMENT\HERBALS\MILK THISTLE
  5. VITAMIN B COMPLEX [Concomitant]
     Active Substance: CYANOCOBALAMIN\DEXPANTHENOL\NIACINAMIDE\PYRIDOXINE HYDROCHLORIDE\RIBOFLAVIN 5^-PHOSPHATE SODIUM\THIAMINE HYDROCHLORIDE\VITAMIN B COMPLEX
  6. XANAX [Concomitant]
     Active Substance: ALPRAZOLAM
  7. MAGNESIUM [Concomitant]
     Active Substance: MAGNESIUM
  8. VALIUM [Concomitant]
     Active Substance: DIAZEPAM
  9. GLUCOSAMINE [Concomitant]
     Active Substance: GLUCOSAMINE
  10. CHONDROITIN [Concomitant]
     Active Substance: CHONDROITIN
  11. PROPRANOLOL [Concomitant]
     Active Substance: PROPRANOLOL HYDROCHLORIDE
  12. DEXTROAMPHETAMINE. [Concomitant]
     Active Substance: DEXTROAMPHETAMINE
  13. LEVOTHYROXINE. [Concomitant]
     Active Substance: LEVOTHYROXINE
  14. TURMERIC CURCUMIN [Concomitant]
     Active Substance: HERBALS\TURMERIC
  15. PRIMIDONE. [Concomitant]
     Active Substance: PRIMIDONE
  16. VITAMIN D3 [Concomitant]
     Active Substance: CHOLECALCIFEROL

REACTIONS (3)
  - Fatigue [None]
  - Chills [None]
  - Burning sensation [None]

NARRATIVE: CASE EVENT DATE: 20210616
